FAERS Safety Report 5859693-4 (Version None)
Quarter: 2008Q3

REPORT INFORMATION
  Report Type: 
  Country: None (occurrence: None)
  Receive Date: 20080827
  Receipt Date: 20080821
  Transmission Date: 20090109
  Serious: Yes (Death)
  Sender: FDA-Public Use
  Company Number: US-WATSON-2008-05082

PATIENT
  Age: 76 Year
  Sex: Female

DRUGS (4)
  1. CLORAZEPATE DIPOTASSIUM (WATSON LABORATORIES) [Suspect]
     Indication: DRUG USE FOR UNKNOWN INDICATION
     Dosage: 7.5 UNK, DAILY
     Route: 048
  2. METOPROLOL (WATSON LABORATORIES) [Suspect]
     Indication: DRUG USE FOR UNKNOWN INDICATION
     Dosage: 50 MG, DAILY
     Route: 048
  3. PROMETHAZINE (WATSON LABORATORIES) [Suspect]
     Indication: NAUSEA
     Dosage: 25 MG, DAILY, PRN
     Route: 048
  4. TYLENOL W/ CODEINE [Suspect]
     Indication: DRUG USE FOR UNKNOWN INDICATION
     Dosage: 60-300MG MG, DAILY
     Route: 048

REACTIONS (4)
  - ACUTE RESPIRATORY DISTRESS SYNDROME [None]
  - CONSTIPATION [None]
  - FAECALOMA [None]
  - SEPSIS [None]
